FAERS Safety Report 19178790 (Version 1)
Quarter: 2021Q2

REPORT INFORMATION
  Report Type: Spontaneous
  Country: JP (occurrence: JP)
  Receive Date: 20210426
  Receipt Date: 20210426
  Transmission Date: 20210717
  Serious: Yes (Other)
  Sender: FDA-Public Use
  Company Number: NVSJ2021JP006199

PATIENT
  Age: 73 Year
  Sex: Male

DRUGS (3)
  1. VOTRIENT [Suspect]
     Active Substance: PAZOPANIB HYDROCHLORIDE
     Indication: RENAL CELL CARCINOMA STAGE III
     Dosage: 800 MG
     Route: 048
     Dates: start: 201705, end: 201705
  2. VOTRIENT [Suspect]
     Active Substance: PAZOPANIB HYDROCHLORIDE
     Dosage: 400 MG
     Route: 048
     Dates: start: 201708
  3. VOTRIENT [Suspect]
     Active Substance: PAZOPANIB HYDROCHLORIDE
     Dosage: 200 MG
     Route: 048
     Dates: start: 201711, end: 202007

REACTIONS (7)
  - Diverticulum intestinal [Unknown]
  - Haemorrhoids [Unknown]
  - Haematochezia [Unknown]
  - Proteinuria [Unknown]
  - Glomerular filtration rate decreased [Unknown]
  - Diarrhoea [Unknown]
  - Platelet count decreased [Unknown]

NARRATIVE: CASE EVENT DATE: 201705
